FAERS Safety Report 20308213 (Version 1)
Quarter: 2022Q1

REPORT INFORMATION
  Report Type: Spontaneous
  Country: CN (occurrence: CN)
  Receive Date: 20220107
  Receipt Date: 20220107
  Transmission Date: 20220423
  Serious: Yes (Life-Threatening, Other)
  Sender: FDA-Public Use
  Company Number: CN-PRA-001118

PATIENT
  Age: 8 Year
  Sex: Male

DRUGS (8)
  1. METHYLPREDNISOLONE [Suspect]
     Active Substance: METHYLPREDNISOLONE
     Indication: Henoch-Schonlein purpura
     Dosage: ON DAY 1,
     Route: 065
  2. VASOPRESSIN [Suspect]
     Active Substance: VASOPRESSIN
     Indication: Henoch-Schonlein purpura
     Route: 065
  3. SOMATOSTATIN [Suspect]
     Active Substance: SOMATOSTATIN
     Indication: Henoch-Schonlein purpura
     Route: 065
  4. BATROXOBIN [Suspect]
     Active Substance: BATROXOBIN
     Indication: Henoch-Schonlein purpura
     Route: 065
  5. METHYLPREDNISOLONE [Suspect]
     Active Substance: METHYLPREDNISOLONE
     Indication: Henoch-Schonlein purpura
     Dosage: ON DAY 2,
     Route: 065
  6. METHYLPREDNISOLONE [Suspect]
     Active Substance: METHYLPREDNISOLONE
     Indication: Gastrointestinal haemorrhage
     Dosage: ON DAY 3,
     Route: 065
  7. SOMATOSTATIN [Suspect]
     Active Substance: SOMATOSTATIN
     Indication: Gastrointestinal haemorrhage
     Route: 065
  8. METHYLPREDNISOLONE [Suspect]
     Active Substance: METHYLPREDNISOLONE
     Indication: Henoch-Schonlein purpura
     Dosage: ON DAY 6 TO 8,
     Route: 065

REACTIONS (4)
  - Henoch-Schonlein purpura [Recovered/Resolved]
  - Condition aggravated [Recovered/Resolved]
  - Off label use [Unknown]
  - Gastrointestinal perforation [Unknown]
